FAERS Safety Report 7651965-6 (Version None)
Quarter: 2011Q3

REPORT INFORMATION
  Report Type: 
  Country: None (occurrence: None)
  Receive Date: 20110803
  Receipt Date: 20110722
  Transmission Date: 20111222
  Serious: No
  Sender: FDA-Public Use
  Company Number: US-BIOGENIDEC-2011BI027662

PATIENT
  Age: 45 Year
  Sex: Female

DRUGS (3)
  1. REGULAR INSULIN [Concomitant]
     Indication: DIABETES MELLITUS
  2. APIDRA PUMP [Concomitant]
     Indication: DIABETES MELLITUS
  3. TYSABRI [Suspect]
     Indication: MULTIPLE SCLEROSIS
     Route: 042
     Dates: start: 20110328

REACTIONS (2)
  - SINUSITIS [None]
  - BLOOD GLUCOSE INCREASED [None]
